FAERS Safety Report 10994602 (Version 1)
Quarter: 2015Q2

REPORT INFORMATION
  Report Type: Other
  Country: IN (occurrence: IN)
  Receive Date: 20150407
  Receipt Date: 20150407
  Transmission Date: 20150821
  Serious: Yes (Other)
  Sender: FDA-Public Use
  Company Number: IN-DSJP-DSU-2015-110647

PATIENT

DRUGS (5)
  1. TRIBENZOR [Suspect]
     Active Substance: AMLODIPINE BESYLATE\HYDROCHLOROTHIAZIDE\OLMESARTAN MEDOXOMIL
     Indication: HYPERTENSION
     Dosage: 20/5/12.5, UNK
  2. HMG COA REDUCTASE INHIBITORS [Concomitant]
     Active Substance: UNSPECIFIED INGREDIENT
     Indication: PRODUCT USED FOR UNKNOWN INDICATION
     Dosage: UNK
  3. ANTIPLATELET AGENTS [Concomitant]
     Indication: PRODUCT USED FOR UNKNOWN INDICATION
  4. HYPOGLYCEMIC AGENTS [Concomitant]
     Indication: PRODUCT USED FOR UNKNOWN INDICATION
     Dosage: UNK
  5. TRIBENZOR [Suspect]
     Active Substance: AMLODIPINE BESYLATE\HYDROCHLOROTHIAZIDE\OLMESARTAN MEDOXOMIL
     Dosage: 40/5/12.5, UNK
     Route: 048

REACTIONS (17)
  - Hypotension [Unknown]
  - Hyponatraemia [Unknown]
  - Headache [Unknown]
  - Chest pain [Unknown]
  - Lower respiratory tract infection [Unknown]
  - Urinary tract infection [Unknown]
  - Myalgia [Unknown]
  - Pruritus [Unknown]
  - Cerebrovascular accident [Unknown]
  - Hypersomnia [Unknown]
  - Drug ineffective [Unknown]
  - Labyrinthitis [Unknown]
  - Oedema peripheral [Unknown]
  - Dizziness [Unknown]
  - Diarrhoea [Unknown]
  - Gastritis [Unknown]
  - Asthenia [Unknown]
